FAERS Safety Report 17660694 (Version 1)
Quarter: 2020Q2

REPORT INFORMATION
  Report Type: Spontaneous
  Country: US (occurrence: US)
  Receive Date: 20200410
  Receipt Date: 20200410
  Transmission Date: 20200713
  Serious: No
  Sender: FDA-Public Use
  Company Number: None

PATIENT
  Age: 65 Year
  Sex: Male
  Weight: 94.5 kg

DRUGS (1)
  1. OLMESARTAN MEDOXOMIL MANUFACTURED 1/20/19 [Suspect]
     Active Substance: OLMESARTAN MEDOXOMIL
     Indication: HYPERTENSION
     Dosage: ?          QUANTITY:30 TABLET(S);?
     Route: 048

REACTIONS (1)
  - Gastrointestinal disorder [None]

NARRATIVE: CASE EVENT DATE: 20200410
